FAERS Safety Report 8961480 (Version 1)
Quarter: 2012Q4

REPORT INFORMATION
  Report Type: 
  Country: US (occurrence: US)
  Receive Date: 20121212
  Receipt Date: 20121212
  Transmission Date: 20130627
  Serious: Yes (Hospitalization)
  Sender: FDA-Public Use
  Company Number: US-VERTEX PHARMACEUTICALS INC.-2012-025871

PATIENT
  Age: 54 Year
  Sex: Female

DRUGS (12)
  1. INCIVEK [Suspect]
     Indication: HEPATITIS C
     Dosage: UNK
  2. PEGASYS [Suspect]
     Indication: HEPATITIS C
     Dosage: UNK
  3. RIBAVIRIN [Suspect]
     Indication: HEPATITIS C
     Dosage: 600 mg, UNK
     Route: 048
     Dates: start: 20120601, end: 20120826
  4. IBUPROFEN [Concomitant]
     Dosage: UNK
     Dates: start: 20120601
  5. LORTAB                             /00607101/ [Concomitant]
  6. ZOFRAN                             /00955301/ [Concomitant]
  7. ASPIRIN [Concomitant]
  8. NITROGLYCERIN [Concomitant]
  9. LOVENOX [Concomitant]
  10. XANAX [Concomitant]
  11. ENOXAPARIN [Concomitant]
  12. ALPRAZOLAM [Concomitant]

REACTIONS (4)
  - Anaemia [Recovered/Resolved]
  - Chest pain [Recovered/Resolved]
  - Dyspnoea [Recovered/Resolved]
  - Fatigue [Recovered/Resolved]
